FAERS Safety Report 18849036 (Version 7)
Quarter: 2022Q4

REPORT INFORMATION
  Report Type: Spontaneous
  Country: US (occurrence: US)
  Receive Date: 20210204
  Receipt Date: 20221115
  Transmission Date: 20230113
  Serious: Yes (Disabling)
  Sender: FDA-Public Use
  Company Number: US-PFIZER INC-2021106822

PATIENT
  Age: 49 Year
  Sex: Female

DRUGS (1)
  1. XELJANZ XR [Suspect]
     Active Substance: TOFACITINIB CITRATE
     Dosage: 11 MG, DAILY
     Route: 048

REACTIONS (7)
  - Pain [Unknown]
  - Product dose omission issue [Unknown]
  - Memory impairment [Unknown]
  - Feeling abnormal [Unknown]
  - Feeling abnormal [Unknown]
  - Speech disorder [Unknown]
  - Anxiety [Unknown]
